FAERS Safety Report 6439047-2 (Version None)
Quarter: 2009Q4

REPORT INFORMATION
  Report Type: 
  Country: None (occurrence: None)
  Receive Date: 20091113
  Receipt Date: 20091103
  Transmission Date: 20100525
  Serious: Yes (Hospitalization)
  Sender: FDA-Public Use
  Company Number: NL-PFIZER INC-2006113244

PATIENT
  Age: 73 Year
  Sex: Male
  Weight: 74 kg

DRUGS (3)
  1. SUNITINIB MALATE [Suspect]
     Indication: METASTATIC RENAL CELL CARCINOMA
     Dosage: 50 MG, 1X/DAY
     Dates: start: 20060905
  2. QUINAPRIL [Concomitant]
     Route: 048
     Dates: start: 20050322
  3. ACENOCOUMAROL [Concomitant]
     Route: 048
     Dates: start: 20051130

REACTIONS (2)
  - CONFUSIONAL STATE [None]
  - PYREXIA [None]
